FAERS Safety Report 8790863 (Version 1)
Quarter: 2012Q4

REPORT INFORMATION
  Report Type: Spontaneous
  Country: US (occurrence: None)
  Receive Date: 20120906
  Receipt Date: 20120906
  Transmission Date: 20130627
  Serious: Yes (Hospitalization)
  Sender: FDA-Public Use
  Company Number: 2012080146

PATIENT
  Age: 54 Year
  Sex: Female

DRUGS (2)
  1. MESALAMINE [Suspect]
     Indication: ULCERATIVE COLITIS
  2. PREDNISOLONE (PREDNISOLONE) [Concomitant]

REACTIONS (1)
  - Pericardial effusion [None]
